FAERS Safety Report 13313471 (Version 1)
Quarter: 2017Q1

REPORT INFORMATION
  Report Type: Spontaneous
  Country: FR (occurrence: FR)
  Receive Date: 20170309
  Receipt Date: 20170309
  Transmission Date: 20170428
  Serious: Yes (Hospitalization)
  Sender: FDA-Public Use
  Company Number: FR-ABBVIE-17P-056-1901086-00

PATIENT
  Age: 30 Year
  Sex: Female

DRUGS (3)
  1. DECAPEPTYL [Suspect]
     Active Substance: TRIPTORELIN
     Dosage: 11.25 MG, UNK
     Route: 030
     Dates: start: 201608, end: 201608
  2. ENANTONE LP [Suspect]
     Active Substance: LEUPROLIDE ACETATE
     Indication: ENDOMETRIOSIS
     Dosage: UNK
     Route: 030
     Dates: start: 2006, end: 2006
  3. DECAPEPTYL [Suspect]
     Active Substance: TRIPTORELIN
     Indication: ENDOMETRIOSIS
     Dosage: UNK
     Route: 030
     Dates: start: 2005, end: 2005

REACTIONS (9)
  - Arthralgia [Not Recovered/Not Resolved]
  - Neck pain [Not Recovered/Not Resolved]
  - Neuralgia [Not Recovered/Not Resolved]
  - Muscular weakness [Recovered/Resolved]
  - Condition aggravated [Not Recovered/Not Resolved]
  - Musculoskeletal pain [Not Recovered/Not Resolved]
  - Muscle contractions involuntary [Not Recovered/Not Resolved]
  - Muscular weakness [Not Recovered/Not Resolved]
  - Hypoaesthesia [Not Recovered/Not Resolved]

NARRATIVE: CASE EVENT DATE: 2006
